FAERS Safety Report 7960922-1 (Version None)
Quarter: 2011Q4

REPORT INFORMATION
  Report Type: 
  Country: None (occurrence: None)
  Receive Date: 20111121
  Receipt Date: 20110809
  Transmission Date: 20120403
  Serious: No
  Sender: FDA-Public Use
  Company Number: 1000021807

PATIENT
  Age: 69 Year
  Sex: Male

DRUGS (6)
  1. VIIBRYD [Suspect]
     Indication: ANXIETY
     Dosage: 10 MG (10 MG, 1 IN 1 D), ORAL
     Route: 048
     Dates: start: 20110624, end: 20110626
  2. VIIBRYD [Suspect]
     Indication: DEPRESSION
     Dosage: 10 MG (10 MG, 1 IN 1 D), ORAL
     Route: 048
     Dates: start: 20110624, end: 20110626
  3. INSOMNIA MEDICATION NOS (INSOMNIA MEDICATION NOS) (INSOMNIA MEDICATION [Concomitant]
  4. DIOVAN (VALSARTAN) (40 MILLIGRAM, TABLETS) (VALSARTAN) [Concomitant]
  5. ALLOPURINOL [Concomitant]
  6. VIIBRYD [Suspect]
     Indication: DEPRESSION
     Dosage: 10 MG, ORAL 20 MG (20 MG, 1 IN 1 D), ORAL
     Route: 048
     Dates: start: 20110601

REACTIONS (6)
  - BRUXISM [None]
  - DIZZINESS [None]
  - INSOMNIA [None]
  - BALANCE DISORDER [None]
  - NERVOUSNESS [None]
  - LIBIDO DECREASED [None]
